FAERS Safety Report 19437279 (Version 1)
Quarter: 2021Q2

REPORT INFORMATION
  Report Type: Spontaneous
  Country: US (occurrence: US)
  Receive Date: 20210618
  Receipt Date: 20210618
  Transmission Date: 20210717
  Serious: No
  Sender: FDA-Public Use
  Company Number: US-BIOHAVEN PHARMACEUTICALS-2021BHV00033

PATIENT
  Age: 38 Year
  Sex: Female
  Weight: 77.1 kg

DRUGS (9)
  1. NURTEC ODT [Suspect]
     Active Substance: RIMEGEPANT SULFATE
     Indication: MIGRAINE
     Dosage: 75 MG, AS NEEDED (MAX 1 IN 24 HOURS)
     Route: 048
     Dates: start: 2020
  2. DULOXETINE. [Concomitant]
     Active Substance: DULOXETINE
     Dosage: 14 MG, 1X/DAY
  3. PROZAC [Concomitant]
     Active Substance: FLUOXETINE HYDROCHLORIDE
     Dosage: 40 UNK, 1X/DAY
  4. EMGALITY [Suspect]
     Active Substance: GALCANEZUMAB-GNLM
     Dosage: UNK
     Dates: start: 202008
  5. BIOTIN [Concomitant]
     Active Substance: BIOTIN
  6. TOPAMAX [Concomitant]
     Active Substance: TOPIRAMATE
     Dosage: 100 MG, 1X/DAY
  7. RIZATRIPTAN. [Concomitant]
     Active Substance: RIZATRIPTAN
     Dosage: 10 MG, ONE TO TWO TIMES PER DAY
  8. NURTEC ODT [Suspect]
     Active Substance: RIMEGEPANT SULFATE
     Dosage: 75 MG, EVERY OTHER DAY
     Route: 048
     Dates: start: 2020, end: 202101
  9. COPPER IUD [Concomitant]
     Active Substance: COPPER

REACTIONS (8)
  - Exercise tolerance decreased [Unknown]
  - Flatulence [Not Recovered/Not Resolved]
  - Intermenstrual bleeding [Recovered/Resolved]
  - Weight increased [Not Recovered/Not Resolved]
  - Drug ineffective [Recovered/Resolved]
  - Gastrointestinal pain [Not Recovered/Not Resolved]
  - Migraine [Recovering/Resolving]
  - Diarrhoea [Not Recovered/Not Resolved]

NARRATIVE: CASE EVENT DATE: 2020
